FAERS Safety Report 19916170 (Version 1)
Quarter: 2021Q4

REPORT INFORMATION
  Report Type: Spontaneous
  Country: US (occurrence: US)
  Receive Date: 20211004
  Receipt Date: 20211004
  Transmission Date: 20220303
  Serious: Yes (Life-Threatening)
  Sender: FDA-Public Use
  Company Number: None

PATIENT
  Age: 69 Year
  Sex: Male
  Weight: 113.4 kg

DRUGS (3)
  1. REGEN-COV [Suspect]
     Active Substance: CASIRIVIMAB\IMDEVIMAB
     Indication: COVID-19
     Dosage: ?          OTHER FREQUENCY:SINGLE DOSE;
     Route: 041
     Dates: start: 20211001, end: 20211001
  2. DIPHENHYDRAMINE [Concomitant]
     Active Substance: DIPHENHYDRAMINE
     Dates: start: 20211001, end: 20211001
  3. METHYLPREDNISOLONE [Concomitant]
     Active Substance: METHYLPREDNISOLONE
     Dates: start: 20211001, end: 20211001

REACTIONS (6)
  - Dyspnoea [None]
  - Blood pressure decreased [None]
  - Heart rate decreased [None]
  - Pallor [None]
  - Cold sweat [None]
  - Loss of consciousness [None]

NARRATIVE: CASE EVENT DATE: 20211001
